FAERS Safety Report 6507135-8 (Version None)
Quarter: 2009Q4

REPORT INFORMATION
  Report Type: 
  Country: None (occurrence: None)
  Receive Date: 20091221
  Receipt Date: 20091210
  Transmission Date: 20100525
  Serious: Yes (Hospitalization, Disabling)
  Sender: FDA-Public Use
  Company Number: PHHY2009JP50177

PATIENT
  Sex: Male
  Weight: 60 kg

DRUGS (9)
  1. ZOMETA [Suspect]
     Indication: METASTASES TO BONE
     Dosage: 4MG PER ADMINISTRATION
     Route: 042
     Dates: start: 20060629, end: 20090903
  2. AREDIA [Suspect]
     Indication: METASTASES TO BONE
     Route: 042
  3. DOCETAXEL [Concomitant]
     Indication: NEOPLASM MALIGNANT
  4. DECADRON [Concomitant]
     Dosage: 1 MG, UNK
     Route: 048
  5. LASIX [Concomitant]
     Dosage: 20 MG, UNK
     Route: 048
  6. ALDACTONE [Concomitant]
     Dosage: 25 MG, UNK
     Route: 048
  7. MUCOSTA [Concomitant]
     Dosage: 200 MG, UNK
     Route: 048
  8. ZYLORIC [Concomitant]
     Dosage: 200 MG, UNK
     Route: 048
  9. ZOLADEX [Concomitant]
     Dosage: 1 DF, UNK
     Route: 058
     Dates: start: 20050627

REACTIONS (2)
  - OSTEONECROSIS [None]
  - TOOTHACHE [None]
